FAERS Safety Report 5360646-3 (Version None)
Quarter: 2007Q2

REPORT INFORMATION
  Report Type: 
  Country: None (occurrence: None)
  Receive Date: 20070618
  Receipt Date: 20070604
  Transmission Date: 20071010
  Serious: Yes (Death)
  Sender: FDA-Public Use
  Company Number: JP-ROCHE-499890

PATIENT
  Age: 8 Year
  Sex: Male
  Weight: 16 kg

DRUGS (5)
  1. TAMIFLU [Suspect]
     Dosage: DOSE FORM: DRY SYRUP.
     Route: 048
     Dates: start: 20060130, end: 20060130
  2. DEPAKENE [Concomitant]
     Dosage: REPORTED AS DEPAKENE(SODIUM VALPORATE).
     Route: 048
  3. ACDEAM [Concomitant]
     Dosage: GENERIC REPORTED AS LYSOZYME HYDROCHLORIDE.
     Route: 048
     Dates: start: 20060130, end: 20060130
  4. ASVERIN [Concomitant]
     Route: 048
     Dates: start: 20060130, end: 20060130
  5. ANHIBA [Concomitant]
     Route: 054
     Dates: start: 20060101, end: 20060101

REACTIONS (1)
  - SHOCK HAEMORRHAGIC [None]
